FAERS Safety Report 10019353 (Version 1)
Quarter: 2014Q1

REPORT INFORMATION
  Report Type: Spontaneous
  Country: JP (occurrence: JP)
  Receive Date: 20140318
  Receipt Date: 20140318
  Transmission Date: 20141002
  Serious: Yes (Other)
  Sender: FDA-Public Use
  Company Number: JP-SA-2014SA029823

PATIENT
  Age: 75 Year
  Sex: Male
  Weight: 62 kg

DRUGS (12)
  1. ELPLAT [Suspect]
     Indication: RECTAL CANCER
     Route: 041
     Dates: start: 20121214, end: 20131227
  2. ELPLAT [Suspect]
     Indication: RECTAL CANCER
     Route: 040
     Dates: start: 20121214, end: 20131108
  3. 5 FU [Suspect]
     Indication: RECTAL CANCER
     Route: 040
     Dates: start: 20121214, end: 20131108
  4. 5 FU [Suspect]
     Indication: RECTAL CANCER
     Route: 041
     Dates: start: 20121214, end: 20131206
  5. CALCIUM LEVOFOLINATE [Concomitant]
     Dates: start: 20121214, end: 20131206
  6. AVASTIN [Concomitant]
     Dates: start: 20130308, end: 20131206
  7. DEXART [Concomitant]
     Dates: start: 20121214, end: 20131206
  8. GRANISETRON [Concomitant]
     Dates: start: 20121214, end: 20131206
  9. CLOSTRIDIUM BUTYRICUM [Concomitant]
     Dates: start: 20121207, end: 20130926
  10. COLONEL [Concomitant]
     Dosage: FORM: FINE GRANULE
     Dates: start: 20121217, end: 20131025
  11. LASIX [Concomitant]
     Dates: start: 20131220
  12. SPIRONOLACTONE [Concomitant]
     Dates: start: 20131220

REACTIONS (2)
  - Hepatic cirrhosis [Not Recovered/Not Resolved]
  - Neutrophil count decreased [Unknown]
